FAERS Safety Report 21087121 (Version 6)
Quarter: 2022Q4

REPORT INFORMATION
  Report Type: Report from Study
  Country: MX (occurrence: MX)
  Receive Date: 20220715
  Receipt Date: 20221111
  Transmission Date: 20230113
  Serious: Yes (Life-Threatening, Other)
  Sender: FDA-Public Use
  Company Number: MX-NOVARTISPH-NVSC2022MX160384

PATIENT
  Sex: Female
  Weight: 50 kg

DRUGS (2)
  1. KISQALI [Suspect]
     Active Substance: RIBOCICLIB
     Indication: Breast cancer
     Dosage: 3 DOSAGE FORM, QD
     Route: 048
  2. KISQALI [Suspect]
     Active Substance: RIBOCICLIB
     Dosage: UNK
     Route: 048

REACTIONS (26)
  - Feeling abnormal [Unknown]
  - Metastases to bone [Unknown]
  - Limb discomfort [Unknown]
  - Pain in extremity [Unknown]
  - Colitis [Unknown]
  - Depression [Unknown]
  - Solar lentigo [Recovered/Resolved]
  - Pulmonary pain [Unknown]
  - Discouragement [Unknown]
  - Oropharyngeal discomfort [Unknown]
  - Pain [Unknown]
  - Neuralgia [Unknown]
  - Weight decreased [Unknown]
  - Bone pain [Unknown]
  - Alopecia [Unknown]
  - Cough [Unknown]
  - Fatigue [Unknown]
  - Anaemia [Unknown]
  - Back pain [Unknown]
  - Stress [Unknown]
  - White blood cell count decreased [Unknown]
  - Red blood cell count decreased [Unknown]
  - Abdominal discomfort [Recovered/Resolved]
  - Abdominal pain upper [Recovered/Resolved]
  - Haemoglobin decreased [Unknown]
  - Inappropriate schedule of product administration [Unknown]
